FAERS Safety Report 20385928 (Version 1)
Quarter: 2022Q1

REPORT INFORMATION
  Report Type: Spontaneous
  Country: US (occurrence: US)
  Receive Date: 20220127
  Receipt Date: 20220127
  Transmission Date: 20220423
  Serious: No
  Sender: FDA-Public Use
  Company Number: US-BAUSCH-BL-2022-002243

PATIENT
  Sex: Female

DRUGS (3)
  1. APRISO [Suspect]
     Active Substance: MESALAMINE
     Indication: Product used for unknown indication
     Route: 065
  2. MESALAMINE [Suspect]
     Active Substance: MESALAMINE
     Indication: Crohn^s disease
     Route: 065
  3. DELZICOL [Concomitant]
     Active Substance: MESALAMINE
     Indication: Crohn^s disease

REACTIONS (2)
  - Drug ineffective [Unknown]
  - Inability to afford medication [Unknown]
